FAERS Safety Report 7374098-5 (Version None)
Quarter: 2011Q1

REPORT INFORMATION
  Report Type: 
  Country: None (occurrence: None)
  Receive Date: 20110315
  Receipt Date: 20110308
  Transmission Date: 20110831
  Serious: Yes (Disabling)
  Sender: FDA-Public Use
  Company Number: CIP10003204

PATIENT
  Age: 60 Year
  Sex: Male

DRUGS (7)
  1. ATROVENT [Concomitant]
  2. ACTONEL [Suspect]
     Indication: OSTEOPOROSIS
     Dosage: 150 MG ONCE A MONTH, ORAL
     Route: 048
     Dates: start: 20100801, end: 20101201
  3. MINIPRESS [Concomitant]
  4. OXIS (FORMOTEROL) [Concomitant]
  5. PREDNISOLONE [Concomitant]
  6. LERCANIDIPINE [Concomitant]
  7. ASMO (SALBUTAMOL SULFATE) [Concomitant]

REACTIONS (4)
  - MYALGIA [None]
  - PAIN IN EXTREMITY [None]
  - NEURALGIA [None]
  - DRUG INEFFECTIVE [None]
